FAERS Safety Report 5459519-7 (Version None)
Quarter: 2007Q3

REPORT INFORMATION
  Report Type: 
  Country: None (occurrence: None)
  Receive Date: 20070919
  Receipt Date: 20070914
  Transmission Date: 20080115
  Serious: Yes (Life-Threatening)
  Sender: FDA-Public Use
  Company Number: B0487667A

PATIENT
  Age: 87 Year
  Sex: Female

DRUGS (5)
  1. LANOXIN [Suspect]
     Indication: CARDIAC FAILURE
     Dosage: .25MG PER DAY
     Route: 048
     Dates: start: 20070215, end: 20070420
  2. NORVASK [Concomitant]
     Dosage: 10MG PER DAY
     Route: 048
  3. ASPIRIN [Concomitant]
     Dosage: 100MG PER DAY
     Route: 048
  4. EPROSARTAN MESILATE + HYDROCHLOROTHIAZIDE [Concomitant]
     Route: 048
  5. LANSOX [Concomitant]
     Dosage: 15MG PER DAY
     Route: 048

REACTIONS (7)
  - BRADYCARDIA [None]
  - DEHYDRATION [None]
  - HYPOTENSION [None]
  - NAUSEA [None]
  - OLIGURIA [None]
  - THERAPEUTIC AGENT TOXICITY [None]
  - VOMITING [None]
